FAERS Safety Report 14082363 (Version 1)
Quarter: 2017Q4

REPORT INFORMATION
  Report Type: Spontaneous
  Country: US (occurrence: US)
  Receive Date: 20171012
  Receipt Date: 20171012
  Transmission Date: 20180321
  Serious: No
  Sender: FDA-Public Use
  Company Number: US-MYLANLABS-2017M1052573

PATIENT
  Sex: Female

DRUGS (4)
  1. EPINEPHRINE. [Suspect]
     Active Substance: EPINEPHRINE
     Indication: PRODUCT USED FOR UNKNOWN INDICATION
     Dosage: UNK
  2. PREGABALIN. [Suspect]
     Active Substance: PREGABALIN
     Indication: PRODUCT USED FOR UNKNOWN INDICATION
     Dosage: UNK
  3. AMLODIPINE [Suspect]
     Active Substance: AMLODIPINE BESYLATE
     Indication: PRODUCT USED FOR UNKNOWN INDICATION
     Dosage: UNK
  4. CELECOXIB. [Suspect]
     Active Substance: CELECOXIB
     Indication: PRODUCT USED FOR UNKNOWN INDICATION
     Dosage: UNK

REACTIONS (30)
  - Night sweats [Unknown]
  - Joint crepitation [Unknown]
  - Motor dysfunction [Unknown]
  - Joint dislocation [Unknown]
  - Asthenia [Unknown]
  - Gait disturbance [Unknown]
  - Cardiac murmur [Unknown]
  - Dizziness [Unknown]
  - Myalgia [Unknown]
  - Back pain [Unknown]
  - Tremor [Unknown]
  - Hypersensitivity [Unknown]
  - Insomnia [Unknown]
  - Contusion [Unknown]
  - Kyphosis [Unknown]
  - Fatigue [Unknown]
  - Headache [Unknown]
  - Migraine [Unknown]
  - Depression [Unknown]
  - Hypoaesthesia [Unknown]
  - Gastrooesophageal reflux disease [Unknown]
  - Dry mouth [Unknown]
  - Muscular weakness [Unknown]
  - Arthralgia [Unknown]
  - Joint range of motion decreased [Unknown]
  - Oedema [Unknown]
  - Swelling [Unknown]
  - Tenderness [Unknown]
  - Anxiety [Unknown]
  - Joint swelling [Unknown]
